FAERS Safety Report 9741015 (Version 7)
Quarter: 2015Q2

REPORT INFORMATION
  Report Type: Spontaneous
  Country: US (occurrence: US)
  Receive Date: 20131209
  Receipt Date: 20150630
  Transmission Date: 20150821
  Serious: Yes (Hospitalization, Disabling, Other)
  Sender: FDA-Public Use
  Company Number: US-009507513-1312USA001261

PATIENT
  Sex: Female
  Weight: 68.27 kg

DRUGS (8)
  1. FOSAMAX [Suspect]
     Active Substance: ALENDRONATE SODIUM
     Indication: OSTEOPENIA
     Dosage: 70 MG, UNK
     Route: 048
     Dates: end: 2002
  2. HORMONES (UNSPECIFIED) [Concomitant]
     Active Substance: UNSPECIFIED INGREDIENT
     Dosage: UNK
     Dates: start: 1990, end: 2014
  3. FOSAMAX PLUS D [Suspect]
     Active Substance: ALENDRONATE SODIUM\CHOLECALCIFEROL
     Indication: OSTEOPENIA
     Dosage: 70 MG, UNK
     Route: 048
     Dates: end: 2010
  4. FOSAMAX [Suspect]
     Active Substance: ALENDRONATE SODIUM
     Dosage: UNK
     Route: 048
     Dates: start: 1997, end: 2002
  5. VITAMIN D [Concomitant]
     Active Substance: CHOLECALCIFEROL
     Dosage: UNK
     Route: 048
     Dates: start: 1980
  6. CALCIUM (UNSPECIFIED) [Concomitant]
     Active Substance: CALCIUM
     Dosage: UNK
     Route: 048
     Dates: start: 1098
  7. VITAMINS (UNSPECIFIED) [Concomitant]
     Active Substance: VITAMINS
     Dosage: UNK
     Route: 048
     Dates: start: 1980
  8. FOSAMAX PLUS D [Suspect]
     Active Substance: ALENDRONATE SODIUM\CHOLECALCIFEROL
     Dosage: UNK
     Route: 048
     Dates: start: 2002, end: 2010

REACTIONS (25)
  - Tibia fracture [Recovered/Resolved]
  - Fracture treatment [Unknown]
  - Lower respiratory tract infection [Recovered/Resolved]
  - Vitamin D deficiency [Unknown]
  - Tooth extraction [Unknown]
  - Gastrooesophageal reflux disease [Unknown]
  - Femur fracture [Unknown]
  - Femur fracture [Unknown]
  - Low turnover osteopathy [Unknown]
  - Osteopenia [Unknown]
  - Traumatic arthritis [Unknown]
  - Osteoporosis [Unknown]
  - Bone loss [Unknown]
  - Dental prosthesis user [Unknown]
  - Femur fracture [Recovered/Resolved]
  - Pain [Unknown]
  - Back pain [Not Recovered/Not Resolved]
  - Depression [Not Recovered/Not Resolved]
  - Open reduction of fracture [Unknown]
  - Arthritis [Unknown]
  - Open reduction of fracture [Unknown]
  - Bone graft [Unknown]
  - Inflammation [Unknown]
  - Oral surgery [Unknown]
  - Tooth extraction [Unknown]

NARRATIVE: CASE EVENT DATE: 19970810
